FAERS Safety Report 17980972 (Version 2)
Quarter: 2020Q3

REPORT INFORMATION
  Report Type: Spontaneous
  Country: NL (occurrence: NL)
  Receive Date: 20200704
  Receipt Date: 20200720
  Transmission Date: 20201103
  Serious: Yes (Congenital Anomaly, Other)
  Sender: FDA-Public Use
  Company Number: NL-ACCORD-187756

PATIENT
  Sex: Female

DRUGS (3)
  1. MISOPROSTOL. [Suspect]
     Active Substance: MISOPROSTOL
     Dosage: 3 X 200 UG
     Route: 064
  2. METHOTREXATE. [Suspect]
     Active Substance: METHOTREXATE
     Route: 064
  3. MISOPROSTOL. [Suspect]
     Active Substance: MISOPROSTOL
     Route: 064

REACTIONS (5)
  - Limb deformity [Unknown]
  - Microcephaly [Unknown]
  - Foetal exposure during pregnancy [Unknown]
  - Oral fibroma [Unknown]
  - Dysmorphism [Unknown]
